FAERS Safety Report 13452230 (Version 1)
Quarter: 2017Q2

REPORT INFORMATION
  Report Type: Spontaneous
  Country: US (occurrence: US)
  Receive Date: 20170418
  Receipt Date: 20170418
  Transmission Date: 20170830
  Serious: Yes (Hospitalization)
  Sender: FDA-Public Use
  Company Number: US-TEVA-749526ACC

PATIENT
  Age: 60 Year
  Sex: Male

DRUGS (4)
  1. COUMADIN [Suspect]
     Active Substance: WARFARIN SODIUM
     Indication: ATRIAL FIBRILLATION
     Dosage: 2 MILLIGRAM DAILY;
     Dates: start: 2002
  2. METOPROLOL. [Concomitant]
     Active Substance: METOPROLOL
     Dates: start: 2005
  3. SUTENT [Suspect]
     Active Substance: SUNITINIB MALATE
     Indication: RENAL CELL CARCINOMA
     Dosage: 50 MILLIGRAM DAILY;
     Dates: start: 20150405
  4. LIPITOR [Concomitant]
     Active Substance: ATORVASTATIN CALCIUM
     Dates: start: 2005

REACTIONS (1)
  - Blood viscosity decreased [Recovered/Resolved]

NARRATIVE: CASE EVENT DATE: 20161114
